FAERS Safety Report 15292179 (Version 1)
Quarter: 2018Q3

REPORT INFORMATION
  Report Type: Spontaneous
  Country: US (occurrence: US)
  Receive Date: 20180806
  Receipt Date: 20180806
  Transmission Date: 20181010
  Serious: Yes (Life-Threatening, Hospitalization, Disabling)
  Sender: FDA-Public Use
  Company Number: None

PATIENT
  Age: 33 Year
  Sex: Female
  Weight: 99 kg

DRUGS (1)
  1. TOPAMAX [Suspect]
     Active Substance: TOPIRAMATE
     Indication: HEADACHE
     Dosage: ?          QUANTITY:2 TABLET(S);?
     Route: 048
     Dates: start: 20080101, end: 20170801

REACTIONS (13)
  - Nausea [None]
  - Weight decreased [None]
  - Dizziness [None]
  - Insomnia [None]
  - Suicidal ideation [None]
  - Dyspnoea [None]
  - Memory impairment [None]
  - Pyrexia [None]
  - Foot fracture [None]
  - General physical health deterioration [None]
  - Pruritus [None]
  - Depression [None]
  - Quality of life decreased [None]

NARRATIVE: CASE EVENT DATE: 20140101
